FAERS Safety Report 5721674-9 (Version None)
Quarter: 2008Q2

REPORT INFORMATION
  Report Type: 
  Country: None (occurrence: None)
  Receive Date: 20080429
  Receipt Date: 20070420
  Transmission Date: 20081010
  Serious: No
  Sender: FDA-Public Use
  Company Number: US-ASTRAZENECA-2007UW07835

PATIENT
  Age: 92 Year
  Sex: Male

DRUGS (2)
  1. NEXIUM [Suspect]
     Indication: GASTROOESOPHAGEAL REFLUX DISEASE
     Route: 048
     Dates: start: 20070420
  2. PILOCARPINE [Concomitant]
     Dosage: ONE DROP IN EACH EYE

REACTIONS (3)
  - AGGRESSION [None]
  - MUSCLE RIGIDITY [None]
  - RESTLESSNESS [None]
